FAERS Safety Report 5747188-8 (Version None)
Quarter: 2008Q2

REPORT INFORMATION
  Report Type: 
  Country: None (occurrence: None)
  Receive Date: 20080520
  Receipt Date: 20080520
  Transmission Date: 20081010
  Serious: Yes (Other)
  Sender: FDA-Public Use
  Company Number: 2008BI012077

PATIENT
  Sex: Female

DRUGS (1)
  1. TYSABRI [Suspect]
     Dosage: IV
     Route: 042
     Dates: start: 20061201, end: 20080101

REACTIONS (3)
  - CERVIX CARCINOMA [None]
  - ENDOMETRIOSIS [None]
  - MULTIPLE MYELOMA [None]
